FAERS Safety Report 17484469 (Version 5)
Quarter: 2020Q2

REPORT INFORMATION
  Report Type: Report from Study
  Country: US (occurrence: US)
  Receive Date: 20200302
  Receipt Date: 20200626
  Transmission Date: 20200713
  Serious: Yes (Other)
  Sender: FDA-Public Use
  Company Number: US-DSJP-DSU-2020-107282

PATIENT

DRUGS (2)
  1. PEXIDARTINIB [Suspect]
     Active Substance: PEXIDARTINIB
     Indication: SYNOVITIS
     Dosage: 400 MG, BID
     Route: 048
     Dates: start: 20200220
  2. PEXIDARTINIB [Suspect]
     Active Substance: PEXIDARTINIB
     Dosage: UNK
     Route: 048
     Dates: start: 2020, end: 2020

REACTIONS (9)
  - Rectal haemorrhage [Unknown]
  - Liver function test abnormal [Not Recovered/Not Resolved]
  - Platelet count decreased [Not Recovered/Not Resolved]
  - Alopecia [Unknown]
  - Pruritus [Recovered/Resolved]
  - Product dose omission [Unknown]
  - Hair colour changes [Unknown]
  - Drug ineffective [Recovered/Resolved]
  - Testicular atrophy [Recovered/Resolved]

NARRATIVE: CASE EVENT DATE: 2020
